FAERS Safety Report 9111884 (Version 1)
Quarter: 2013Q1

REPORT INFORMATION
  Report Type: Spontaneous
  Country: US (occurrence: US)
  Receive Date: 20130219
  Receipt Date: 20130219
  Transmission Date: 20140127
  Serious: No
  Sender: FDA-Public Use
  Company Number: US-BRISTOL-MYERS SQUIBB COMPANY-16690323

PATIENT
  Age: 44 Year
  Sex: Female
  Weight: 77.1 kg

DRUGS (8)
  1. ABATACEPT SUBQ INJECTION 125MG/ML [Suspect]
     Indication: RHEUMATOID ARTHRITIS
     Dosage: LAST DATE OF INJECTION:03JUN2012, ON IV ORENCIA SINCE 29-SEP-2010
     Route: 058
     Dates: start: 201111
  2. METHOTREXATE [Concomitant]
     Dosage: 1DF: 2.5MG-22.5 MG
  3. LEVOTHYROXINE [Concomitant]
     Dosage: TAB, EXCEPT SUNDAY
     Route: 048
  4. FOLIC ACID [Concomitant]
  5. ACETAMINOPHEN + HYDROCODONE [Concomitant]
     Dosage: 1DF: 500MG-7.5 MG, TAB
     Route: 048
  6. PREDNISONE [Concomitant]
     Dosage: TAB
     Route: 048
  7. HYDROCHLOROTHIAZIDE [Concomitant]
     Dosage: TAB
     Route: 048
  8. ACYCLOVIR [Concomitant]
     Dosage: TAB
     Route: 048

REACTIONS (2)
  - Sinusitis [Recovered/Resolved]
  - Drug dose omission [Unknown]
